FAERS Safety Report 24131878 (Version 1)
Quarter: 2024Q3

REPORT INFORMATION
  Report Type: Spontaneous
  Country: CN (occurrence: CN)
  Receive Date: 20240724
  Receipt Date: 20240724
  Transmission Date: 20241017
  Serious: Yes (Other)
  Sender: GILEAD
  Company Number: CN-GILEAD-2024-0681445

PATIENT
  Age: 67 Year
  Sex: Female

DRUGS (4)
  1. TRODELVY [Suspect]
     Active Substance: SACITUZUMAB GOVITECAN-HZIY
     Indication: Breast cancer
     Dosage: 540.000 MG, ON DAY1, DAY8, ONCE EVERY 21 DAYS
     Route: 041
     Dates: start: 20220422, end: 20240506
  2. MOXIFLOXACIN [Concomitant]
     Active Substance: MOXIFLOXACIN
  3. METHYLPREDNISOLONE SODIUM SUCCINATE [Concomitant]
     Active Substance: METHYLPREDNISOLONE SODIUM SUCCINATE
     Dosage: 20 MG
  4. AMBROXOL [Concomitant]
     Active Substance: AMBROXOL
     Indication: Productive cough

REACTIONS (1)
  - Interstitial lung disease [Not Recovered/Not Resolved]
